FAERS Safety Report 6286525-5 (Version None)
Quarter: 2009Q3

REPORT INFORMATION
  Report Type: 
  Country: None (occurrence: None)
  Receive Date: 20090728
  Receipt Date: 20090717
  Transmission Date: 20100115
  Serious: Yes (Hospitalization)
  Sender: FDA-Public Use
  Company Number: GB-CELGENEUS-167-50794-09071248

PATIENT
  Sex: Female
  Weight: 54.8 kg

DRUGS (8)
  1. VIDAZA [Suspect]
     Route: 058
     Dates: end: 20090618
  2. VALPROATE SODIUM [Suspect]
     Route: 065
     Dates: end: 20090701
  3. ATRA [Suspect]
     Dosage: 30/40 MG
     Route: 065
     Dates: end: 20090701
  4. THEOPHYLLINE [Suspect]
     Route: 065
     Dates: end: 20090701
  5. DOMPERIDONE [Concomitant]
     Indication: PROPHYLAXIS
     Route: 048
     Dates: start: 20090608
  6. ALLOPURINOL [Concomitant]
     Route: 048
     Dates: start: 20090608
  7. ITRACONAZOLE [Concomitant]
     Indication: ANTIFUNGAL PROPHYLAXIS
     Route: 048
     Dates: start: 20090528
  8. AMLODIPINE [Concomitant]
     Indication: HYPERTENSION
     Route: 048
     Dates: end: 20090706

REACTIONS (2)
  - CONFUSIONAL STATE [None]
  - FEBRILE NEUTROPENIA [None]
